FAERS Safety Report 6531410-4 (Version None)
Quarter: 2010Q1

REPORT INFORMATION
  Report Type: 
  Country: None (occurrence: None)
  Receive Date: 20100108
  Receipt Date: 20091130
  Transmission Date: 20100710
  Serious: No
  Sender: FDA-Public Use
  Company Number: A0816295A

PATIENT
  Age: 56 Year
  Sex: Female

DRUGS (6)
  1. TYKERB [Suspect]
     Indication: BREAST CANCER
     Dosage: 3TAB PER DAY
     Route: 048
     Dates: start: 20091025
  2. OXYCONTIN [Concomitant]
  3. NORVASC [Concomitant]
  4. AROMASIN [Concomitant]
  5. LEXAPRO [Concomitant]
  6. COUMADIN [Concomitant]

REACTIONS (2)
  - NAUSEA [None]
  - VOMITING [None]
